FAERS Safety Report 4360057-3 (Version None)
Quarter: 2004Q2

REPORT INFORMATION
  Report Type: 
  Country: None (occurrence: None)
  Receive Date: 20040513
  Receipt Date: 20040427
  Transmission Date: 20050107
  Serious: Yes (Life-Threatening)
  Sender: FDA-Public Use
  Company Number: DSA_24352_2004

PATIENT
  Sex: 0

DRUGS (2)
  1. ATIVAN [Suspect]
     Dosage: 6 MG Q DAY
     Route: 064
  2. SEROQUEL [Suspect]
     Dosage: 600 MG  Q DAY
     Route: 064

REACTIONS (9)
  - AGITATION NEONATAL [None]
  - CAESAREAN SECTION [None]
  - CRANIOSYNOSTOSIS [None]
  - DRUG EXPOSURE DURING PREGNANCY [None]
  - DRUG WITHDRAWAL SYNDROME [None]
  - FEEDING PROBLEM IN NEWBORN [None]
  - HYPERTONIA NEONATAL [None]
  - NEONATAL RESPIRATORY DISTRESS SYNDROME [None]
  - PYREXIA [None]
